FAERS Safety Report 12104527 (Version 1)
Quarter: 2016Q1

REPORT INFORMATION
  Report Type: Spontaneous
  Country: US (occurrence: US)
  Receive Date: 20160223
  Receipt Date: 20160223
  Transmission Date: 20160526
  Serious: Yes (Other)
  Sender: FDA-Public Use
  Company Number: US-BAYER-2016-030848

PATIENT
  Age: 21 Year
  Sex: Female

DRUGS (1)
  1. SKYLA [Suspect]
     Active Substance: LEVONORGESTREL
     Indication: CONTRACEPTION
     Dosage: 14 MCG/24HR, CONT
     Route: 015
     Dates: start: 20160129

REACTIONS (6)
  - Abdominal pain [None]
  - Ovarian cyst [None]
  - Vaginal haemorrhage [None]
  - Vaginal odour [None]
  - Device dislocation [Recovered/Resolved]
  - Bacterial vaginosis [None]

NARRATIVE: CASE EVENT DATE: 2016
